FAERS Safety Report 14569333 (Version 2)
Quarter: 2018Q1

REPORT INFORMATION
  Report Type: Report from Study
  Country: CA (occurrence: CA)
  Receive Date: 20180223
  Receipt Date: 20180228
  Transmission Date: 20180509
  Serious: Yes (Death, Hospitalization)
  Sender: FDA-Public Use
  Company Number: CA-TAKEDA-2018MPI001725

PATIENT
  Age: 70 Year
  Sex: Female

DRUGS (3)
  1. REVLIMID [Concomitant]
     Active Substance: LENALIDOMIDE
     Indication: PLASMA CELL MYELOMA
     Dosage: 25 MG, UNK
     Route: 048
     Dates: start: 20140703, end: 20180215
  2. DEXAMETHASONE. [Concomitant]
     Active Substance: DEXAMETHASONE
     Indication: PLASMA CELL MYELOMA
     Dosage: UNK
     Route: 048
     Dates: start: 20121220
  3. IXAZOMIB [Suspect]
     Active Substance: IXAZOMIB
     Indication: PLASMA CELL MYELOMA
     Dosage: UNK
     Route: 048
     Dates: start: 20121220

REACTIONS (3)
  - Pneumonia [Fatal]
  - Influenza [Fatal]
  - Femoral neck fracture [Unknown]

NARRATIVE: CASE EVENT DATE: 20180214
